FAERS Safety Report 23600464 (Version 1)
Quarter: 2024Q1

REPORT INFORMATION
  Report Type: Spontaneous
  Country: IT (occurrence: IT)
  Receive Date: 20240306
  Receipt Date: 20240306
  Transmission Date: 20240410
  Serious: Yes (Hospitalization)
  Sender: FDA-Public Use
  Company Number: None

PATIENT
  Age: 7 Year
  Sex: Female

DRUGS (1)
  1. TEGRETOL [Suspect]
     Active Substance: CARBAMAZEPINE
     Indication: Epilepsy
     Dosage: (SCARSA GESTIONE DELLA TERAPIA DA PARTE DELLA FAMIGLIA; IN TERAPIA 15 ML LA SERA, 10 ML LA MATTINA)
     Route: 048
     Dates: start: 20230223

REACTIONS (2)
  - Vomiting [Recovered/Resolved]
  - Sopor [Recovered/Resolved]

NARRATIVE: CASE EVENT DATE: 20230403
